FAERS Safety Report 8323324-4 (Version None)
Quarter: 2012Q2

REPORT INFORMATION
  Report Type: 
  Country: None (occurrence: None)
  Receive Date: 20120430
  Receipt Date: 20120425
  Transmission Date: 20120825
  Serious: Yes (Other)
  Sender: FDA-Public Use
  Company Number: US-PFIZER INC-2012102959

PATIENT
  Sex: Female
  Weight: 63.039 kg

DRUGS (1)
  1. NEURONTIN [Suspect]
     Indication: BIPOLAR DISORDER
     Dosage: 800MG FIVE TIMES A DAY

REACTIONS (2)
  - MANIA [None]
  - DRUG INEFFECTIVE [None]
